FAERS Safety Report 4343692-8 (Version None)
Quarter: 2004Q2

REPORT INFORMATION
  Report Type: 
  Country: None (occurrence: None)
  Receive Date: 20040419
  Receipt Date: 20040309
  Transmission Date: 20050107
  Serious: Yes (Death, Hospitalization, Other)
  Sender: FDA-Public Use
  Company Number: A-US2004-04742

PATIENT
  Age: 45 Year
  Sex: Female

DRUGS (8)
  1. TRACLEER [Suspect]
     Indication: PULMONARY HYPERTENSION
     Dosage: SEE IMAGE
     Route: 048
     Dates: start: 20020305, end: 20020513
  2. TRACLEER [Suspect]
     Indication: PULMONARY HYPERTENSION
     Dosage: SEE IMAGE
     Route: 048
     Dates: start: 20020514, end: 20020613
  3. FLOLAN [Concomitant]
  4. CARAFATE [Concomitant]
  5. TUMS (MAGNESIUM TRISILICATE, MAGNESIUM CARBONATE, CALCIUM CARBONATE) [Concomitant]
  6. NEO-SYNEPHRINE (PHENYLEPHRINE HYDROCHLORIDE) [Concomitant]
  7. VASOPRESSIN [Concomitant]
  8. NITRIC OXIDE(NITRIC OXIDE) [Concomitant]

REACTIONS (14)
  - ALANINE AMINOTRANSFERASE INCREASED [None]
  - ASPARTATE AMINOTRANSFERASE INCREASED [None]
  - BLOOD ALKALINE PHOSPHATASE INCREASED [None]
  - BLOOD BILIRUBIN INCREASED [None]
  - CARDIAC ARREST [None]
  - CATHETER SEPSIS [None]
  - CENTRAL LINE INFECTION [None]
  - DISSEMINATED INTRAVASCULAR COAGULATION [None]
  - GASTROINTESTINAL HAEMORRHAGE [None]
  - LIVER FUNCTION TEST ABNORMAL [None]
  - MALABSORPTION [None]
  - MULTI-ORGAN FAILURE [None]
  - NAUSEA [None]
  - SEPTIC SHOCK [None]
